FAERS Safety Report 7732355-4 (Version None)
Quarter: 2011Q3

REPORT INFORMATION
  Report Type: 
  Country: None (occurrence: None)
  Receive Date: 20110906
  Receipt Date: 20110830
  Transmission Date: 20111222
  Serious: Yes (Other)
  Sender: FDA-Public Use
  Company Number: JP-PFIZER INC-2011203211

PATIENT
  Age: 89 Year
  Sex: Female

DRUGS (3)
  1. MAGNESIUM OXIDE [Concomitant]
     Route: 048
  2. REBAMIPIDE [Concomitant]
     Route: 048
  3. BAREON [Suspect]
     Route: 048

REACTIONS (1)
  - DELIRIUM [None]
